FAERS Safety Report 24579462 (Version 4)
Quarter: 2024Q4

REPORT INFORMATION
  Report Type: Report from Study
  Country: US (occurrence: US)
  Receive Date: 20241105
  Receipt Date: 20241211
  Transmission Date: 20250115
  Serious: Yes (Death, Hospitalization)
  Sender: ROCHE
  Company Number: US-ROCHE-10000122655

PATIENT
  Age: 44 Year
  Sex: Male

DRUGS (18)
  1. OCRELIZUMAB [Suspect]
     Active Substance: OCRELIZUMAB
     Indication: Multiple sclerosis
     Dosage: FREQUENCY: OTHER?SECOND DOSE WAS IN 2 WEEKS
     Route: 042
     Dates: start: 20210209
  2. OCRELIZUMAB [Suspect]
     Active Substance: OCRELIZUMAB
     Route: 042
     Dates: start: 20210226
  3. OCRELIZUMAB [Suspect]
     Active Substance: OCRELIZUMAB
     Route: 042
     Dates: start: 20210825
  4. OCRELIZUMAB [Suspect]
     Active Substance: OCRELIZUMAB
     Route: 042
     Dates: start: 20220228
  5. OCRELIZUMAB [Suspect]
     Active Substance: OCRELIZUMAB
     Route: 042
     Dates: start: 20220831
  6. OCRELIZUMAB [Suspect]
     Active Substance: OCRELIZUMAB
     Route: 042
     Dates: start: 20230307
  7. OCRELIZUMAB [Suspect]
     Active Substance: OCRELIZUMAB
     Route: 042
     Dates: start: 20230914
  8. OCRELIZUMAB [Suspect]
     Active Substance: OCRELIZUMAB
     Route: 042
     Dates: start: 20240325
  9. DALFAMPRIDINE [Concomitant]
     Active Substance: DALFAMPRIDINE
     Dosage: ONGOING
     Dates: start: 20170824
  10. ATORVASTATIN [Concomitant]
     Active Substance: ATORVASTATIN
     Dosage: ONGOING
     Dates: start: 20150304
  11. BACLOFEN [Concomitant]
     Active Substance: BACLOFEN
     Dosage: OGOIG
     Dates: start: 20160628
  12. ESCITALOPRAM [Concomitant]
     Active Substance: ESCITALOPRAM OXALATE
     Dosage: ONGOING
     Dates: start: 20180130
  13. GLUCAGON [Concomitant]
     Active Substance: GLUCAGON
     Dosage: ONGOING
     Dates: start: 20220922
  14. INSULIN ASPART [Concomitant]
     Active Substance: INSULIN ASPART
     Dosage: ONGOING
     Dates: start: 20151111
  15. INSULIN GLARGINE [Concomitant]
     Active Substance: INSULIN GLARGINE
     Dosage: ONGOING
     Dates: start: 20180110
  16. LISINOPRIL [Concomitant]
     Active Substance: LISINOPRIL
     Dosage: ONGOING
     Dates: start: 20141028
  17. CANNABIDIOL [Concomitant]
     Active Substance: CANNABIDIOL
     Dosage: ONGOING
     Dates: start: 20210830
  18. ALPHA LIPOIC ACID [Concomitant]
     Active Substance: .ALPHA.-LIPOIC ACID
     Dosage: ONGOING
     Dates: start: 20230228

REACTIONS (3)
  - Cellulitis [Fatal]
  - Arrhythmia [Fatal]
  - Sepsis [Fatal]

NARRATIVE: CASE EVENT DATE: 20241025
